FAERS Safety Report 9631824 (Version 1)
Quarter: 2013Q4

REPORT INFORMATION
  Report Type: Spontaneous
  Country: DE (occurrence: DE)
  Receive Date: 20131018
  Receipt Date: 20131018
  Transmission Date: 20140711
  Serious: Yes (Life-Threatening, Hospitalization)
  Sender: FDA-Public Use
  Company Number: DE-ACTAVIS-2013-18075

PATIENT
  Age: 60 Year
  Sex: Male

DRUGS (5)
  1. RAMIPRIL (UNKNOWN) [Suspect]
     Indication: HYPERTENSION
     Dosage: UNK
     Route: 065
  2. SUFENTANIL                         /00723502/ [Concomitant]
     Indication: INDUCTION OF ANAESTHESIA
     Dosage: 50 MCG, UNK
     Route: 065
  3. ETOMIDATE SULFATE [Concomitant]
     Indication: INDUCTION OF ANAESTHESIA
     Dosage: 20 MG, UNKNOWN
     Route: 065
  4. ATRACURIUM                         /00614702/ [Concomitant]
     Indication: INDUCTION OF ANAESTHESIA
     Dosage: 50 MG, UNKNOWN
     Route: 065
  5. CEFUROXIME [Concomitant]
     Indication: PRODUCT USED FOR UNKNOWN INDICATION
     Dosage: 1500 MG, UNKNOWN
     Route: 065

REACTIONS (5)
  - Capillary leak syndrome [Recovered/Resolved]
  - Multi-organ failure [Recovered/Resolved]
  - Shock [Recovered/Resolved]
  - Lactic acidosis [Recovered/Resolved]
  - Angioedema [Recovered/Resolved]
